FAERS Safety Report 19651528 (Version 1)
Quarter: 2021Q3

REPORT INFORMATION
  Report Type: Spontaneous
  Country: US (occurrence: US)
  Receive Date: 20210803
  Receipt Date: 20210803
  Transmission Date: 20211014
  Serious: No
  Sender: FDA-Public Use
  Company Number: US-DRREDDYS-SPO/USA/21/0138488

PATIENT
  Age: 70 Year
  Sex: Male
  Weight: 94.5 kg

DRUGS (1)
  1. OMEPRAZOLE MAGNESIUM DELAYED RELEASE OTC [Suspect]
     Active Substance: OMEPRAZOLE MAGNESIUM
     Indication: COUGH
     Dates: start: 20210726

REACTIONS (3)
  - Product use in unapproved indication [Unknown]
  - Product quality issue [Unknown]
  - Drug ineffective [Unknown]
